FAERS Safety Report 20332633 (Version 4)
Quarter: 2022Q2

REPORT INFORMATION
  Report Type: Spontaneous
  Country: CN (occurrence: CN)
  Receive Date: 20220113
  Receipt Date: 20220416
  Transmission Date: 20220720
  Serious: Yes (Hospitalization)
  Sender: FDA-Public Use
  Company Number: CN-JNJFOC-20220117196

PATIENT
  Age: 48 Year
  Sex: Female
  Weight: 50 kg

DRUGS (1)
  1. STELARA [Suspect]
     Active Substance: USTEKINUMAB
     Indication: Crohn^s disease
     Dosage: (130 MG/26 ML) INJECTED TWO DOSES
     Route: 042
     Dates: start: 202104

REACTIONS (4)
  - Anaphylactic reaction [Recovered/Resolved]
  - Infusion related reaction [Recovered/Resolved]
  - Depressed mood [Unknown]
  - Vaginal fistula [Unknown]

NARRATIVE: CASE EVENT DATE: 20210401
